FAERS Safety Report 8428853 (Version 3)
Quarter: 2013Q3

REPORT INFORMATION
  Report Type: Report from Study
  Country: AU (occurrence: AU)
  Receive Date: 20120227
  Receipt Date: 20130906
  Transmission Date: 20140515
  Serious: Yes (Other)
  Sender: FDA-Public Use
  Company Number: AU-ROCHE-693243

PATIENT
  Age: 64 Year
  Sex: Male
  Weight: 58 kg

DRUGS (4)
  1. VEMURAFENIB [Suspect]
     Indication: MALIGNANT MELANOMA
     Dosage: LAST DOSE PRIOR TO SAE : 13/MAY/2010
     Route: 048
  2. PREDNISONE [Concomitant]
     Route: 065
     Dates: start: 20100220, end: 20100310
  3. CETIRIZINE [Concomitant]
     Route: 065
  4. PERINDOPRIL [Concomitant]
     Route: 065

REACTIONS (7)
  - VIIth nerve paralysis [Recovered/Resolved]
  - Squamous cell carcinoma of skin [Recovered/Resolved]
  - Keratoacanthoma [Recovered/Resolved]
  - Keratoacanthoma [Recovered/Resolved]
  - Squamous cell carcinoma of skin [Recovered/Resolved]
  - Squamous cell carcinoma of skin [Recovered/Resolved]
  - Squamous cell carcinoma of skin [Recovered/Resolved]
